FAERS Safety Report 7535241-8 (Version None)
Quarter: 2011Q2

REPORT INFORMATION
  Report Type: 
  Country: None (occurrence: None)
  Receive Date: 20110609
  Receipt Date: 20071218
  Transmission Date: 20111010
  Serious: Yes (Other)
  Sender: FDA-Public Use
  Company Number: PHFR2007IE02885

PATIENT
  Sex: Male

DRUGS (7)
  1. HYTRIN [Concomitant]
     Indication: BENIGN PROSTATIC HYPERPLASIA
     Dosage: 2 MG PER DAY
     Route: 048
  2. ATORVASTATIN [Concomitant]
     Indication: HYPERCHOLESTEROLAEMIA
     Dosage: 10 MG PER DAY
     Route: 048
  3. SYMBICORT [Concomitant]
     Indication: CHRONIC OBSTRUCTIVE PULMONARY DISEASE
  4. CLOZAPINE [Suspect]
     Indication: SCHIZOPHRENIA
     Dosage: 700 MG PER DAY
     Route: 048
     Dates: start: 20030318
  5. ASPIRIN [Concomitant]
     Indication: LEFT VENTRICULAR HYPERTROPHY
     Dosage: 75 MG PER DAY
     Route: 048
  6. COVERSYL PLUS [Concomitant]
     Indication: HYPERTENSION
     Route: 048
  7. COMBIVENT [Concomitant]
     Indication: CHRONIC OBSTRUCTIVE PULMONARY DISEASE

REACTIONS (3)
  - LEFT VENTRICULAR HYPERTROPHY [None]
  - WHITE BLOOD CELL COUNT INCREASED [None]
  - NEUTROPHIL COUNT INCREASED [None]
